FAERS Safety Report 9478415 (Version 1)
Quarter: 2013Q3

REPORT INFORMATION
  Report Type: Spontaneous
  Country: US (occurrence: US)
  Receive Date: 20130827
  Receipt Date: 20130827
  Transmission Date: 20140515
  Serious: Yes (Hospitalization, Other)
  Sender: FDA-Public Use
  Company Number: US-009507513-1308USA011966

PATIENT
  Age: 92 Year
  Sex: Female

DRUGS (3)
  1. STROMECTOL [Suspect]
     Indication: ACARODERMATITIS
     Dosage: DOSE: SLIGHTLY UNDER 200 MCG/KG,FIRST DOSE WAS ADMINISTERED
     Route: 048
     Dates: start: 201308
  2. ANTIMICROBIAL (UNSPECIFIED) [Concomitant]
     Route: 042
  3. METOPROLOL [Concomitant]

REACTIONS (1)
  - Blood creatinine increased [Recovering/Resolving]
